FAERS Safety Report 9076199 (Version 1)
Quarter: 2013Q1

REPORT INFORMATION
  Report Type: Report from Study
  Country: US (occurrence: US)
  Receive Date: 20130129
  Receipt Date: 20130129
  Transmission Date: 20140127
  Serious: No
  Sender: FDA-Public Use
  Company Number: US-ABBOTT-12P-163-0932868-00

PATIENT
  Age: 69 Year
  Sex: Female

DRUGS (5)
  1. HUMIRA 40 MG/0.8 ML PEN [Suspect]
     Indication: CROHN^S DISEASE
     Dosage: LOADING DOSE
     Dates: start: 20120419, end: 20120419
  2. HUMIRA 40 MG/0.8 ML PEN [Suspect]
     Dates: start: 20120503
  3. HUMIRA 40 MG/0.8 ML PEN [Suspect]
  4. SYNTHROID [Concomitant]
     Indication: THYROID DISORDER
     Dosage: 0.25MG DAILY
  5. QUESTRAN [Concomitant]
     Indication: PRODUCT USED FOR UNKNOWN INDICATION
     Dosage: ONE SCOOP DAILY

REACTIONS (4)
  - Pollakiuria [Recovering/Resolving]
  - Bladder discomfort [Recovering/Resolving]
  - Urinary tract infection [Not Recovered/Not Resolved]
  - Dysuria [Recovering/Resolving]
